FAERS Safety Report 11904178 (Version 2)
Quarter: 2016Q1

REPORT INFORMATION
  Report Type: Report from Study
  Country: CA (occurrence: CA)
  Receive Date: 20160108
  Receipt Date: 20160112
  Transmission Date: 20160526
  Serious: Yes (Other)
  Sender: FDA-Public Use
  Company Number: CA-ABBVIE-16K-028-1533284-00

PATIENT
  Age: 57 Year
  Sex: Female

DRUGS (1)
  1. HUMIRA [Suspect]
     Active Substance: ADALIMUMAB
     Indication: CROHN^S DISEASE
     Route: 058
     Dates: start: 20110520, end: 201503

REACTIONS (2)
  - Precancerous mucosal lesion [Not Recovered/Not Resolved]
  - Lung neoplasm malignant [Recovering/Resolving]

NARRATIVE: CASE EVENT DATE: 201412
